FAERS Safety Report 17052331 (Version 2)
Quarter: 2019Q4

REPORT INFORMATION
  Report Type: Spontaneous
  Country: US (occurrence: US)
  Receive Date: 20191120
  Receipt Date: 20191213
  Transmission Date: 20200122
  Serious: No
  Sender: FDA-Public Use
  Company Number: US-PFIZER INC-2018446071

PATIENT
  Age: 12 Year
  Sex: Male
  Weight: 41.72 kg

DRUGS (11)
  1. EPIPEN [Concomitant]
     Active Substance: EPINEPHRINE
     Dosage: UNK (2-PAK 0.3 MG/0.3 ML INJECTION SOLUTION AUTO-INJECTOR )
     Dates: start: 20150505
  2. LEVOTHYROXINE SODIUM. [Concomitant]
     Active Substance: LEVOTHYROXINE SODIUM
     Dosage: 25 UG, DAILY
     Route: 048
     Dates: start: 20180501
  3. FLUDROCORTISONE ACETATE. [Concomitant]
     Active Substance: FLUDROCORTISONE ACETATE
     Dosage: 0.1 MG, DAILY
     Route: 048
     Dates: start: 20130530
  4. GENOTROPIN [Suspect]
     Active Substance: SOMATROPIN
     Indication: ENDOCRINE DISORDER
     Dosage: 2.2 MG, DAILY
     Route: 058
     Dates: start: 20181019
  5. SILAPAP [Concomitant]
     Active Substance: ACETAMINOPHEN
     Dosage: UNK (160MG/5ML ORAL LIQUID)
     Route: 048
     Dates: start: 20180930
  6. LETROZOLE. [Concomitant]
     Active Substance: LETROZOLE
     Dosage: 2.5 MG, DAILY
     Route: 048
     Dates: start: 20181014
  7. IBUPROFEN. [Concomitant]
     Active Substance: IBUPROFEN
     Dosage: UNK (100MG/5ML ORAL SUSPENSION)
     Dates: start: 20180930
  8. HYDROCORTISONE. [Concomitant]
     Active Substance: HYDROCORTISONE
     Dosage: 5 MG, (TAKE 1TABLET IN THE MORNING, ONE-HALF TABLET IN THE AFTERNOON, AND 1 TABLET AT NIGH)
     Route: 048
     Dates: start: 20120626
  9. GENOTROPIN [Suspect]
     Active Substance: SOMATROPIN
     Indication: GROWTH FAILURE
     Dosage: 1.6 MG, DAILY
     Route: 058
  10. GENOTROPIN [Suspect]
     Active Substance: SOMATROPIN
     Dosage: 2.2 MG, 1X/DAY
     Route: 058
     Dates: start: 20181031
  11. SOLU-CORTEF [Concomitant]
     Active Substance: HYDROCORTISONE SODIUM SUCCINATE
     Indication: ADRENOCORTICAL INSUFFICIENCY ACUTE
     Dosage: 100 MG, AS NEEDED
     Route: 030
     Dates: start: 20191014

REACTIONS (2)
  - Device use issue [Recovered/Resolved]
  - Off label use [Recovered/Resolved]

NARRATIVE: CASE EVENT DATE: 20181031
